FAERS Safety Report 21810841 (Version 2)
Quarter: 2023Q1

REPORT INFORMATION
  Report Type: Report from Study
  Country: AU (occurrence: AU)
  Receive Date: 20230103
  Receipt Date: 20230124
  Transmission Date: 20230418
  Serious: Yes (Hospitalization)
  Sender: FDA-Public Use
  Company Number: AU-EXELIXIS-XL18422059359

PATIENT

DRUGS (22)
  1. CABOZANTINIB [Suspect]
     Active Substance: CABOZANTINIB
     Indication: Product used for unknown indication
     Dosage: UNK
     Dates: start: 20220103, end: 202207
  2. CABOZANTINIB [Suspect]
     Active Substance: CABOZANTINIB
     Dosage: UNK
  3. CABOZANTINIB [Suspect]
     Active Substance: CABOZANTINIB
     Dosage: UNK
     Dates: end: 20221214
  4. PREDNISOLONE [Concomitant]
     Active Substance: PREDNISOLONE
     Dosage: UNK
  5. METHOTREXATE [Concomitant]
     Active Substance: METHOTREXATE
     Dosage: UNK
  6. FOLIC ACID [Concomitant]
     Active Substance: FOLIC ACID
     Dosage: UNK
  7. DOXYCYCLINE [Concomitant]
     Active Substance: DOXYCYCLINE
     Dosage: UNK
  8. AMLODIPINE [Concomitant]
     Active Substance: AMLODIPINE BESYLATE
     Dosage: UNK
  9. PERINDOPRIL [Concomitant]
     Active Substance: PERINDOPRIL
     Dosage: UNK
  10. TAMSULOSIN [Concomitant]
     Active Substance: TAMSULOSIN
     Dosage: UNK
  11. DUTASTERIDE [Concomitant]
     Active Substance: DUTASTERIDE
     Dosage: UNK
  12. BECLOMETHASONE [Concomitant]
     Active Substance: BECLOMETHASONE
     Indication: Dyspnoea
     Dosage: UNK
  13. FORMOTEROL [Concomitant]
     Active Substance: FORMOTEROL
     Indication: Dyspnoea
     Dosage: UNK
  14. GLYCOPYRRONIUM [Concomitant]
     Active Substance: GLYCOPYRRONIUM
     Indication: Dyspnoea
     Dosage: UNK
  15. ALBUTEROL [Concomitant]
     Active Substance: ALBUTEROL
     Indication: Dyspnoea
     Dosage: UNK
  16. MORPHINE [Concomitant]
     Active Substance: MORPHINE
     Indication: Dyspnoea
  17. ACETAMINOPHEN [Concomitant]
     Active Substance: ACETAMINOPHEN
     Indication: Stoma site pain
     Dosage: UNK
  18. OXYCODONE [Concomitant]
     Active Substance: OXYCODONE
     Indication: Stoma site pain
     Dosage: UNK
  19. ENOXAPARIN [Concomitant]
     Active Substance: ENOXAPARIN
     Indication: Pulmonary embolism
     Dosage: UNK
  20. TRIMBROW [Concomitant]
     Indication: Dyspnoea
     Dosage: UNK
  21. DUTASTERIDE\TAMSULOSIN [Concomitant]
     Active Substance: DUTASTERIDE\TAMSULOSIN
     Indication: Benign prostatic hyperplasia
     Dosage: UNK
  22. Glargine biocon [Concomitant]
     Indication: Type 2 diabetes mellitus
     Dosage: UNK

REACTIONS (2)
  - Anastomotic ulcer [Recovering/Resolving]
  - Stomal hernia [Recovering/Resolving]

NARRATIVE: CASE EVENT DATE: 20221229
